FAERS Safety Report 23650778 (Version 2)
Quarter: 2024Q2

REPORT INFORMATION
  Report Type: Spontaneous
  Country: BE (occurrence: BE)
  Receive Date: 20240320
  Receipt Date: 20240502
  Transmission Date: 20240715
  Serious: Yes (Death)
  Sender: FDA-Public Use
  Company Number: BE-BIOVITRUM-2024-BE-004130

PATIENT
  Age: 92 Year

DRUGS (1)
  1. ZYNLONTA [Suspect]
     Active Substance: LONCASTUXIMAB TESIRINE-LPYL
     Indication: Diffuse large B-cell lymphoma
     Dosage: RECEIVED 1 TREATMENT (CYCLE 1)
     Dates: start: 20231027, end: 20231027

REACTIONS (2)
  - Disease progression [Fatal]
  - Drug intolerance [Unknown]

NARRATIVE: CASE EVENT DATE: 20240115
